FAERS Safety Report 4391719-X (Version None)
Quarter: 2004Q3

REPORT INFORMATION
  Report Type: 
  Country: None (occurrence: None)
  Receive Date: 20040701
  Receipt Date: 20040617
  Transmission Date: 20050211
  Serious: Yes (Death, Hospitalization)
  Sender: FDA-Public Use
  Company Number: 170120

PATIENT
  Age: 73 Year
  Sex: Female

DRUGS (2)
  1. AVONEX [Suspect]
     Indication: MULTIPLE SCLEROSIS
     Dosage: 30 MCG QW IM
     Route: 030
     Dates: start: 20010411, end: 20030520
  2. SINEQUAN [Concomitant]

REACTIONS (4)
  - COLON CANCER [None]
  - HAEMATOCRIT DECREASED [None]
  - HEART RATE INCREASED [None]
  - METASTASES TO PLEURA [None]
